FAERS Safety Report 18198578 (Version 11)
Quarter: 2021Q4

REPORT INFORMATION
  Report Type: Other
  Country: GB (occurrence: GB)
  Receive Date: 20200826
  Receipt Date: 20211130
  Transmission Date: 20220304
  Serious: Yes (Hospitalization, Other)
  Sender: FDA-Public Use
  Company Number: GB-MACLEODS PHARMACEUTICALS US LTD-MAC2020027790

PATIENT

DRUGS (31)
  1. TRAMADOL [Suspect]
     Active Substance: TRAMADOL
     Indication: Product used for unknown indication
     Dosage: UNK UNK, QD, DOSAGE FORM UNSPECIFIED
     Route: 065
  2. TRAMADOL [Suspect]
     Active Substance: TRAMADOL
     Indication: Abdominal pain
     Dosage: 50 MILLIGRAM, TID
     Route: 048
     Dates: start: 200904, end: 200909
  3. TRAMADOL [Suspect]
     Active Substance: TRAMADOL
     Dosage: 50 MILLIGRAM, QD (DROPS)
     Route: 065
     Dates: start: 200909, end: 201011
  4. TRAMADOL [Suspect]
     Active Substance: TRAMADOL
     Dosage: 100 MILLIGRAM, QID, 400 MG QD
     Route: 048
     Dates: start: 200910, end: 200911
  5. TRAMADOL [Suspect]
     Active Substance: TRAMADOL
     Dosage: 400 MILLIGRAM, QID
     Route: 048
     Dates: start: 200910, end: 200911
  6. TRAMADOL [Suspect]
     Active Substance: TRAMADOL
     Dosage: 450 MILLIGRAM, QD
     Route: 065
     Dates: start: 200904, end: 200909
  7. PREGABALIN [Suspect]
     Active Substance: PREGABALIN
     Indication: Product used for unknown indication
     Dosage: UNK, DOSAGE FORM: UNSPECIFIED
     Route: 065
  8. DOMPERIDONE [Suspect]
     Active Substance: DOMPERIDONE
     Indication: Product used for unknown indication
     Dosage: 10 MILLIGRAM, TID, UP TO THREE TIMES A DAY, FILM-COATED TABLET
     Route: 048
  9. PRUCALOPRIDE [Suspect]
     Active Substance: PRUCALOPRIDE
     Indication: Product used for unknown indication
     Dosage: 2 MILLIGRAM, QD, PRUCALOPRIDE SUCCINATE (555 (PRUCALOPRIDE))
     Route: 048
  10. AMITRIPTYLINE [Suspect]
     Active Substance: AMITRIPTYLINE
     Indication: Product used for unknown indication
     Dosage: 100 MILLIGRAM, QD, AT NIGHT,
     Route: 048
  11. BETAHISTINE [Suspect]
     Active Substance: BETAHISTINE
     Indication: Product used for unknown indication
     Dosage: 24 MILLIGRAM, QD, DOSAGE FORM: UNSPECIFIED
     Route: 048
  12. COCODAMOL [Suspect]
     Active Substance: ACETAMINOPHEN\CODEINE PHOSPHATE
     Indication: Product used for unknown indication
     Dosage: 8 DOSAGE FORM, QID, EFFERVESCENT TABLET
     Route: 048
  13. COCODAMOL [Suspect]
     Active Substance: ACETAMINOPHEN\CODEINE PHOSPHATE
     Dosage: 8 DOSAGE FORM, QID, 30MG/500MG, CAPSULE
     Route: 048
  14. CYCLIZINE [Suspect]
     Active Substance: CYCLIZINE
     Indication: Vomiting
     Dosage: 50 MILLIGRAM, TID
     Route: 065
  15. CYCLIZINE [Suspect]
     Active Substance: CYCLIZINE
     Indication: Nausea
     Dosage: 50 MILLIGRAM, QD
     Route: 065
  16. CYCLIZINE [Suspect]
     Active Substance: CYCLIZINE
     Indication: Product used for unknown indication
     Dosage: 8 DOSAGE FORM, 50 MG, 3/DAY
     Route: 048
  17. CYCLIZINE [Suspect]
     Active Substance: CYCLIZINE
     Dosage: UNK, DOSAGE FORM: UNSPECIFIED
     Route: 065
  18. GABAPENTIN [Suspect]
     Active Substance: GABAPENTIN
     Indication: Product used for unknown indication
     Dosage: 3600 MILLIGRAM, QD
     Route: 048
  19. GABAPENTIN [Suspect]
     Active Substance: GABAPENTIN
     Dosage: 900 MILLIGRAM, QID
     Route: 048
  20. METOCLOPRAMIDE [Suspect]
     Active Substance: METOCLOPRAMIDE
     Indication: Vomiting
     Dosage: 10 MILLIGRAM, TID
     Route: 048
  21. METOCLOPRAMIDE [Suspect]
     Active Substance: METOCLOPRAMIDE
     Indication: Abdominal pain
     Dosage: 50 MILLIGRAM, QD
     Route: 048
  22. LANSOPRAZOLE [Concomitant]
     Active Substance: LANSOPRAZOLE
     Indication: Product used for unknown indication
     Dosage: 60 MILLIGRAM, QD, 30 MG BID, GASTRO-RESISTANT CAPSULE
     Route: 048
  23. OMEPRAZOLE [Concomitant]
     Active Substance: OMEPRAZOLE
     Indication: Dyspepsia
     Dosage: 40 MILLIGRAM, QD, 1 IN 1 DAYS
     Route: 065
  24. IBUPROFEN [Concomitant]
     Active Substance: IBUPROFEN
     Indication: Abdominal pain
     Dosage: 400 MILLIGRAM, TID, EVERY 8 HOURS
     Route: 065
  25. IBUPROFEN [Concomitant]
     Active Substance: IBUPROFEN
     Dosage: 400 MILLIGRAM, TID, EVERY 8 HOURS
     Route: 065
  26. HYDROCORTISONE [Concomitant]
     Active Substance: HYDROCORTISONE
     Indication: Product used for unknown indication
     Dosage: UNK
     Route: 048
  27. HYDROCORTISONE [Concomitant]
     Active Substance: HYDROCORTISONE
     Dosage: 450 MILLIGRAM, QD, 150 MG, TID
     Route: 065
     Dates: start: 200904, end: 200909
  28. HYDROCORTISONE [Concomitant]
     Active Substance: HYDROCORTISONE
     Dosage: 1600 MILLIGRAM, QD, 400 MG, QID
     Route: 048
     Dates: start: 200910, end: 200911
  29. HYDROCORTISONE [Concomitant]
     Active Substance: HYDROCORTISONE
     Dosage: 150 MILLIGRAM, TID
     Route: 065
     Dates: start: 200904, end: 200909
  30. SUMATRIPTAN [Concomitant]
     Active Substance: SUMATRIPTAN
     Indication: Migraine
     Dosage: 50 MILLIGRAM, QD, 1 IN 1 DAYS
     Route: 065
  31. SUMATRIPTAN [Concomitant]
     Active Substance: SUMATRIPTAN
     Dosage: UNK

REACTIONS (10)
  - Pituitary tumour benign [Unknown]
  - Hyperprolactinaemia [Recovering/Resolving]
  - Vision blurred [Unknown]
  - Secondary adrenocortical insufficiency [Recovered/Resolved]
  - Lethargy [Recovered/Resolved]
  - Adrenal insufficiency [Recovered/Resolved]
  - Abdominal pain [Recovered/Resolved]
  - Dizziness [Recovered/Resolved]
  - Headache [Recovered/Resolved]
  - Vomiting [Recovered/Resolved]

NARRATIVE: CASE EVENT DATE: 20091101
